FAERS Safety Report 9916706 (Version 1)
Quarter: 2014Q1

REPORT INFORMATION
  Report Type: Spontaneous
  Country: IT (occurrence: IT)
  Receive Date: 20140221
  Receipt Date: 20140221
  Transmission Date: 20141002
  Serious: Yes (Hospitalization)
  Sender: FDA-Public Use
  Company Number: IT-PFIZER INC-2014048616

PATIENT
  Age: 45 Year
  Sex: Female

DRUGS (1)
  1. XANAX [Suspect]
     Indication: ANXIETY
     Dosage: 30 GTT, UNK
     Route: 048
     Dates: start: 20131218, end: 201312

REACTIONS (2)
  - Confusional state [Unknown]
  - Delirium [Unknown]
